FAERS Safety Report 6229964-0 (Version None)
Quarter: 2009Q2

REPORT INFORMATION
  Report Type: 
  Country: None (occurrence: None)
  Receive Date: 20090615
  Receipt Date: 20090605
  Transmission Date: 20091009
  Serious: Yes (Hospitalization, Other)
  Sender: FDA-Public Use
  Company Number: US-ELI_LILLY_AND_COMPANY-US200906002303

PATIENT
  Sex: Female
  Weight: 91.61 kg

DRUGS (9)
  1. BYETTA [Suspect]
     Indication: TYPE 2 DIABETES MELLITUS
     Dosage: 5 UG, 2/D
     Route: 058
     Dates: start: 20080701, end: 20080801
  2. BYETTA [Suspect]
     Dosage: 10 UG, 2/D
     Route: 058
     Dates: start: 20080801, end: 20090501
  3. METFORMIN HYDROCHLORIDE [Concomitant]
     Indication: TYPE 2 DIABETES MELLITUS
     Dosage: UNK, UNKNOWN
  4. LOTREL [Concomitant]
     Indication: HYPERTENSION
     Dosage: UNK, DAILY (1/D)
     Route: 048
  5. PAXIL [Concomitant]
     Indication: PANIC DISORDER
     Dosage: 10 MG, DAILY (1/D)
     Route: 048
  6. ALPRAZOLAM [Concomitant]
     Indication: PANIC DISORDER
     Dosage: 0.25 MG, OTHER
     Route: 048
  7. CADUET [Concomitant]
     Indication: HYPERTENSION
     Dosage: UNK, DAILY (1/D)
     Route: 048
  8. SYNTHROID [Concomitant]
     Dosage: 0.15 UG, DAILY (1/D)
     Route: 048
  9. OMEPRAZOLE [Concomitant]
     Dosage: 20 MG, DAILY (1/D)
     Route: 048

REACTIONS (8)
  - CONSTIPATION [None]
  - CONTUSION [None]
  - DIZZINESS [None]
  - FACIAL BONES FRACTURE [None]
  - FALL [None]
  - LOSS OF CONSCIOUSNESS [None]
  - UPPER LIMB FRACTURE [None]
  - VERTEBRAL INJURY [None]
